FAERS Safety Report 5794676-4 (Version None)
Quarter: 2008Q2

REPORT INFORMATION
  Report Type: 
  Country: None (occurrence: None)
  Receive Date: 20080626
  Receipt Date: 20080611
  Transmission Date: 20081010
  Serious: Yes (Hospitalization)
  Sender: FDA-Public Use
  Company Number: DSJ-2008-05173

PATIENT
  Age: 59 Year
  Sex: Female

DRUGS (5)
  1. OLMETEC (OLMESARTAN MEDOXOMIL)(TABLET) (OLMESARTAN MEDOXOMIL) [Suspect]
     Indication: HYPERTENSION
     Dosage: 20 MG,PER ORAL; 40 MG,PER ORAL
     Route: 048
     Dates: end: 20080211
  2. OLMETEC (OLMESARTAN MEDOXOMIL)(TABLET) (OLMESARTAN MEDOXOMIL) [Suspect]
     Indication: HYPERTENSION
     Dosage: 20 MG,PER ORAL; 40 MG,PER ORAL
     Route: 048
     Dates: start: 20080212, end: 20080408
  3. ATELEC (CILNIDIPINE) (CILNIDIPINE) [Suspect]
     Dosage: 20 MG, PER ORAL
     Route: 048
     Dates: start: 20080212, end: 20080424
  4. AMARYL [Suspect]
     Indication: DIABETES MELLITUS
     Dosage: 2 MG, PER ORAL
     Route: 048
     Dates: start: 20060131
  5. CRESTOR [Suspect]
     Indication: HYPERLIPIDAEMIA
     Dosage: 2.5 MG, PER ORAL
     Route: 048
     Dates: start: 20071226

REACTIONS (2)
  - HYPERLIPIDAEMIA [None]
  - IDIOPATHIC THROMBOCYTOPENIC PURPURA [None]
